FAERS Safety Report 6434528-X (Version None)
Quarter: 2009Q4

REPORT INFORMATION
  Report Type: 
  Country: None (occurrence: None)
  Receive Date: 20091110
  Receipt Date: 20091105
  Transmission Date: 20100525
  Serious: Yes (Hospitalization, Other)
  Sender: FDA-Public Use
  Company Number: AT-ASTRAZENECA-2009SE05542

PATIENT
  Age: 41 Year
  Sex: Female

DRUGS (4)
  1. NOLVADEX [Suspect]
     Indication: BREAST CANCER
     Route: 048
     Dates: start: 20051201, end: 20081202
  2. ZOLADEX [Suspect]
     Indication: BREAST CANCER
     Route: 058
     Dates: start: 20051201, end: 20081101
  3. CALCIUM [Concomitant]
  4. VITAMIN D [Concomitant]

REACTIONS (4)
  - CERVICAL DYSPLASIA [None]
  - ENDOMETRIAL HYPERPLASIA [None]
  - PAPILLOMA VIRAL INFECTION [None]
  - UTERINE POLYP [None]
